FAERS Safety Report 5136538-1 (Version None)
Quarter: 2006Q4

REPORT INFORMATION
  Report Type: 
  Country: None (occurrence: None)
  Receive Date: 20061027
  Receipt Date: 20061025
  Transmission Date: 20070319
  Serious: Yes (Hospitalization)
  Sender: FDA-Public Use
  Company Number: US-BOEHRINGER INGELHEIM PHARMACEUTICALS, INC.-2006-BP-12534BP

PATIENT
  Age: 1 Year
  Sex: Female

DRUGS (1)
  1. ATROVENT HFA [Suspect]
     Indication: RESPIRATORY DISTRESS
     Route: 055

REACTIONS (1)
  - ANAPHYLACTIC REACTION [None]
